FAERS Safety Report 13153543 (Version 1)
Quarter: 2017Q1

REPORT INFORMATION
  Report Type: Report from Study
  Country: US (occurrence: US)
  Receive Date: 20170126
  Receipt Date: 20170126
  Transmission Date: 20170428
  Serious: Yes (Hospitalization)
  Sender: FDA-Public Use
  Company Number: US-AMGEN-USASL2017011237

PATIENT
  Sex: Male

DRUGS (1)
  1. REPATHA [Suspect]
     Active Substance: EVOLOCUMAB
     Indication: TYPE IIA HYPERLIPIDAEMIA
     Dosage: 140 MG, Q2WK
     Route: 065

REACTIONS (7)
  - Memory impairment [Recovered/Resolved]
  - Pain [Unknown]
  - Dyspnoea [Unknown]
  - Chills [Unknown]
  - Hypersensitivity [Unknown]
  - Chest pain [Unknown]
  - Pyrexia [Unknown]
